FAERS Safety Report 5826931-3 (Version None)
Quarter: 2008Q3

REPORT INFORMATION
  Report Type: 
  Country: None (occurrence: None)
  Receive Date: 20080729
  Receipt Date: 20080729
  Transmission Date: 20090109
  Serious: Yes (Death)
  Sender: FDA-Public Use
  Company Number: None

PATIENT
  Age: 70 Year
  Sex: Male
  Weight: 95.2554 kg

DRUGS (1)
  1. SUTENT [Suspect]
     Indication: RENAL CELL CARCINOMA
     Dosage: ONE CAPSULE DAILY PO
     Route: 048
     Dates: start: 20070522, end: 20070613

REACTIONS (3)
  - ADVERSE DRUG REACTION [None]
  - CARDIAC ARREST [None]
  - HAEMORRHAGE [None]
